FAERS Safety Report 9443642 (Version 6)
Quarter: 2014Q3

REPORT INFORMATION
  Report Type: Spontaneous
  Country: US (occurrence: US)
  Receive Date: 20130806
  Receipt Date: 20140704
  Transmission Date: 20150326
  Serious: Yes (Disabling, Other)
  Sender: FDA-Public Use
  Company Number: US-009507513-1307USA016018

PATIENT
  Sex: Male
  Weight: 84.35 kg

DRUGS (8)
  1. FINASTERIDE. [Suspect]
     Active Substance: FINASTERIDE
     Indication: ANDROGENETIC ALOPECIA
     Dosage: 1.25 MG, QD
     Route: 048
     Dates: start: 200610, end: 20110705
  2. PROSCAR [Suspect]
     Active Substance: FINASTERIDE
     Route: 048
  3. PAXIL [Concomitant]
     Active Substance: PAROXETINE HYDROCHLORIDE
     Indication: DEPRESSION
  4. FINASTERIDE. [Suspect]
     Active Substance: FINASTERIDE
     Dosage: 5 MG, QD
     Route: 048
  5. ZOLOFT [Concomitant]
     Active Substance: SERTRALINE HYDROCHLORIDE
     Indication: PREMATURE EJACULATION
  6. PROPECIA [Suspect]
     Active Substance: FINASTERIDE
     Indication: ANDROGENETIC ALOPECIA
     Dosage: 1 MG, QD
     Route: 048
     Dates: start: 200403, end: 200606
  7. ZOLOFT [Concomitant]
     Active Substance: SERTRALINE HYDROCHLORIDE
     Indication: DEPRESSION
     Dosage: UNK
     Dates: start: 1998, end: 2010
  8. ZOLOFT [Concomitant]
     Active Substance: SERTRALINE HYDROCHLORIDE
     Indication: ERECTILE DYSFUNCTION

REACTIONS (29)
  - Renal failure [Unknown]
  - Back pain [Unknown]
  - Skin irritation [Unknown]
  - Stress [Unknown]
  - Haematuria [Unknown]
  - Teratospermia [Unknown]
  - Sexual dysfunction [Unknown]
  - Orgasm abnormal [Not Recovered/Not Resolved]
  - Erectile dysfunction [Not Recovered/Not Resolved]
  - Depression [Not Recovered/Not Resolved]
  - Arthralgia [Unknown]
  - Wrong technique in drug usage process [Unknown]
  - Insomnia [Unknown]
  - Urinary retention [Unknown]
  - Anxiety [Not Recovered/Not Resolved]
  - Libido decreased [Not Recovered/Not Resolved]
  - Hypogonadism [Unknown]
  - Pollakiuria [Unknown]
  - Rhinoplasty [Unknown]
  - Organic erectile dysfunction [Unknown]
  - Genital lesion [Unknown]
  - Tonsillectomy [Unknown]
  - Blood testosterone decreased [Unknown]
  - Testicular failure [Unknown]
  - Premature ejaculation [Not Recovered/Not Resolved]
  - Drug administration error [Unknown]
  - Viral infection [Unknown]
  - Infertility [Unknown]
  - Ejaculation disorder [Unknown]

NARRATIVE: CASE EVENT DATE: 2006
